FAERS Safety Report 8256515-1 (Version None)
Quarter: 2012Q1

REPORT INFORMATION
  Report Type: 
  Country: None (occurrence: None)
  Receive Date: 20120330
  Receipt Date: 20120322
  Transmission Date: 20120608
  Serious: Yes (Hospitalization)
  Sender: FDA-Public Use
  Company Number: 2012SP007454

PATIENT
  Age: 68 Year
  Sex: Male

DRUGS (7)
  1. ETIZOLAM [Concomitant]
  2. LANSOPRAZOLE [Concomitant]
  3. LUVOX [Suspect]
     Indication: DEPRESSION
     Dosage: PO
     Route: 048
     Dates: start: 20110801
  4. TRAMADOL HYDROHLORIDE [Suspect]
     Indication: CANCER PAIN
     Dosage: 25 MG;QID;PO
     Route: 048
     Dates: start: 20110317, end: 20110318
  5. PROCHLORPERAZINE MALEATE [Concomitant]
  6. MIRTAZAPINE [Suspect]
     Indication: DEPRESSION
     Dosage: PO
     Route: 048
     Dates: start: 20110801
  7. MAGNESIUM OXIDE [Concomitant]

REACTIONS (5)
  - DYSARTHRIA [None]
  - SEROTONIN SYNDROME [None]
  - TREMOR [None]
  - DRUG INTERACTION [None]
  - FACIAL SPASM [None]
